FAERS Safety Report 23669684 (Version 4)
Quarter: 2025Q2

REPORT INFORMATION
  Report Type: Spontaneous
  Country: ES (occurrence: ES)
  Receive Date: 20240325
  Receipt Date: 20250530
  Transmission Date: 20250717
  Serious: Yes (Other)
  Sender: PFIZER
  Company Number: ES-PFIZER INC-PV202400039253

PATIENT
  Age: 80 Year
  Sex: Male

DRUGS (3)
  1. TAFAMIDIS [Suspect]
     Active Substance: TAFAMIDIS
     Indication: Cardiac amyloidosis
     Dates: start: 20240208, end: 20240311
  2. TAFAMIDIS [Suspect]
     Active Substance: TAFAMIDIS
     Dates: start: 2024, end: 20240430
  3. EPLERENONE [Suspect]
     Active Substance: EPLERENONE
     Indication: Cardiac amyloidosis

REACTIONS (5)
  - Renal impairment [Recovered/Resolved]
  - Hyperkalaemia [Unknown]
  - Malaise [Unknown]
  - Dizziness [Unknown]
  - Fatigue [Unknown]

NARRATIVE: CASE EVENT DATE: 20240301
